FAERS Safety Report 8620916-X (Version None)
Quarter: 2012Q3

REPORT INFORMATION
  Report Type: 
  Country: None (occurrence: None)
  Receive Date: 20120824
  Receipt Date: 20120822
  Transmission Date: 20120928
  Serious: Yes (Hospitalization, Disabling, Other)
  Sender: FDA-Public Use
  Company Number: US-009507513-1206USA00884

PATIENT

DRUGS (3)
  1. ASPIRIN [Concomitant]
     Dosage: 81 MG, QD
     Route: 048
  2. FOSAMAX [Suspect]
     Indication: OSTEOPOROSIS
     Dosage: UNK
     Route: 048
     Dates: start: 20000101, end: 20060101
  3. PREDNISONE TAB [Concomitant]
     Dosage: 5 MG, UNK
     Route: 048

REACTIONS (57)
  - DEEP VEIN THROMBOSIS [None]
  - DEFICIENCY ANAEMIA [None]
  - SYNOVITIS [None]
  - SPINAL OSTEOARTHRITIS [None]
  - NOCTURIA [None]
  - SYNOVIAL CYST [None]
  - GASTROOESOPHAGEAL REFLUX DISEASE [None]
  - PAIN IN EXTREMITY [None]
  - COMPRESSION FRACTURE [None]
  - TENDON DISORDER [None]
  - HAEMOSIDEROSIS [None]
  - FIBROSIS [None]
  - CATARACT OPERATION [None]
  - INGROWING NAIL [None]
  - HALLUCINATION [None]
  - INJECTION SITE PAIN [None]
  - NAUSEA [None]
  - IDIOPATHIC PULMONARY FIBROSIS [None]
  - IRON DEFICIENCY [None]
  - LIVER FUNCTION TEST ABNORMAL [None]
  - OBLITERATIVE BRONCHIOLITIS [None]
  - ARTHRALGIA [None]
  - OSTEOPETROSIS [None]
  - OSTEOARTHRITIS [None]
  - SYNCOPE [None]
  - THROMBOCYTOPENIA [None]
  - AORTIC ARTERIOSCLEROSIS [None]
  - ARTHRITIS [None]
  - PALPITATIONS [None]
  - NEUROPATHY PERIPHERAL [None]
  - ANKLE FRACTURE [None]
  - HYPERLIPIDAEMIA [None]
  - INJECTION SITE ERYTHEMA [None]
  - LUNG TRANSPLANT [None]
  - FEMUR FRACTURE [None]
  - VENTRICULAR TACHYCARDIA [None]
  - TRANSPLANT REJECTION [None]
  - BIOPSY LUNG [None]
  - OESOPHAGEAL DISORDER [None]
  - RADIUS FRACTURE [None]
  - LOWER LIMB FRACTURE [None]
  - BREAST PAIN [None]
  - FALL [None]
  - FRACTURED COCCYX [None]
  - URINARY TRACT INFECTION [None]
  - DYSPNOEA [None]
  - MENISCUS LESION [None]
  - DIZZINESS [None]
  - SUPRAVENTRICULAR TACHYCARDIA [None]
  - VITAMIN D DEFICIENCY [None]
  - ATRIAL FIBRILLATION [None]
  - SINUS CONGESTION [None]
  - SINUSITIS [None]
  - HIP SURGERY [None]
  - HYPERTENSION [None]
  - TOOTH FRACTURE [None]
  - OEDEMA PERIPHERAL [None]
